FAERS Safety Report 13168915 (Version 1)
Quarter: 2017Q1

REPORT INFORMATION
  Report Type: Spontaneous
  Country: JP (occurrence: JP)
  Receive Date: 20170131
  Receipt Date: 20170131
  Transmission Date: 20170428
  Serious: Yes (Death, Other)
  Sender: FDA-Public Use
  Company Number: JP-PFIZER INC-2017039408

PATIENT
  Age: 63 Year
  Sex: Male
  Weight: 68 kg

DRUGS (35)
  1. LEVOFOLINATE YAKULT [Suspect]
     Active Substance: LEVOLEUCOVORIN CALCIUM
     Dosage: 350 MG, (197.5 MG/M2), 1X/DAY
     Route: 041
     Dates: start: 20140610, end: 20140610
  2. 5-FU /00098801/ [Concomitant]
     Active Substance: FLUOROURACIL
     Dosage: 4200 MG, D1-2 CYCLIC (2370.2 MG/M2/D1-2)
     Route: 041
     Dates: start: 20140425, end: 20141009
  3. CAMPTO [Suspect]
     Active Substance: IRINOTECAN
     Dosage: 250 MG, (141.1 MG/M2), 1X/DAY
     Route: 041
     Dates: start: 20140626, end: 20140626
  4. ELPLAT [Suspect]
     Active Substance: OXALIPLATIN
     Dosage: 150 MG, (84.7 MG/M2), 1X/DAY
     Route: 041
     Dates: start: 20140626, end: 20140626
  5. LEVOFOLINATE YAKULT [Suspect]
     Active Substance: LEVOLEUCOVORIN CALCIUM
     Dosage: 350 MG, (197.5 MG/M2),1X/DAY
     Route: 041
     Dates: start: 20140724, end: 20140724
  6. LEVOFOLINATE YAKULT [Suspect]
     Active Substance: LEVOLEUCOVORIN CALCIUM
     Dosage: 350 MG, (197.5 MG/M2), 1X/DAY
     Route: 041
     Dates: start: 20140814, end: 20140814
  7. CAMPTO [Suspect]
     Active Substance: IRINOTECAN
     Dosage: 250 MG, (141.1 MG/M2), 1X/DAY
     Route: 041
     Dates: start: 20141009, end: 20141009
  8. ELPLAT [Suspect]
     Active Substance: OXALIPLATIN
     Indication: PANCREATIC CARCINOMA METASTATIC
     Dosage: 150 MG, (84.7 MG/M2), 1X/DAY
     Route: 041
     Dates: start: 20140425, end: 20140425
  9. ELPLAT [Suspect]
     Active Substance: OXALIPLATIN
     Dosage: 150 MG, (84.7 MG/M2), 1X/DAY
     Route: 041
     Dates: start: 20140724, end: 20140724
  10. LEVOFOLINATE YAKULT [Suspect]
     Active Substance: LEVOLEUCOVORIN CALCIUM
     Dosage: 350 MG, (197.5 MG/M2), 1X/DAY
     Route: 041
     Dates: start: 20140508, end: 20140508
  11. CAMPTO [Suspect]
     Active Substance: IRINOTECAN
     Dosage: 250 MG, (141.1 MG/M2), 1X/DAY
     Route: 041
     Dates: start: 20140610, end: 20140610
  12. ELPLAT [Suspect]
     Active Substance: OXALIPLATIN
     Dosage: 150 MG, (84.7 MG/M2), 1X/DAY
     Route: 041
     Dates: start: 20140814, end: 20140814
  13. ELPLAT [Suspect]
     Active Substance: OXALIPLATIN
     Dosage: 150 MG, (84.7 MG/M2), 1X/DAY
     Route: 041
     Dates: start: 20140828, end: 20140828
  14. LEVOFOLINATE YAKULT [Suspect]
     Active Substance: LEVOLEUCOVORIN CALCIUM
     Dosage: 350 MG, (197.5 MG/M2), 1X/DAY
     Route: 041
     Dates: start: 20140710, end: 20140710
  15. LEVOFOLINATE YAKULT [Suspect]
     Active Substance: LEVOLEUCOVORIN CALCIUM
     Dosage: 350 MG, (197.5 MG/M2), 1X/DAY
     Route: 041
     Dates: start: 20140918, end: 20140918
  16. CAMPTO [Suspect]
     Active Substance: IRINOTECAN
     Indication: PANCREATIC CARCINOMA METASTATIC
     Dosage: 250 MG, (141.1 MG/M2), 1X/DAY
     Route: 041
     Dates: start: 20140425, end: 20140425
  17. CAMPTO [Suspect]
     Active Substance: IRINOTECAN
     Dosage: 250 MG, (141.1 MG/M2), 1X/DAY
     Route: 041
     Dates: start: 20140508, end: 20140508
  18. CAMPTO [Suspect]
     Active Substance: IRINOTECAN
     Dosage: 250 MG, (141.1 MG/M2), 1X/DAY
     Route: 041
     Dates: start: 20140710, end: 20140710
  19. CAMPTO [Suspect]
     Active Substance: IRINOTECAN
     Dosage: 250 MG, (141.1 MG/M2), 1X/DAY
     Route: 041
     Dates: start: 20140828, end: 20140828
  20. ELPLAT [Suspect]
     Active Substance: OXALIPLATIN
     Dosage: 150 MG, (84.7 MG/M2), 1X/DAY
     Route: 041
     Dates: start: 20140522, end: 20140522
  21. ELPLAT [Suspect]
     Active Substance: OXALIPLATIN
     Dosage: 150 MG, (84.7 MG/M2), 1X/DAY
     Route: 041
     Dates: start: 20140710, end: 20140710
  22. LEVOFOLINATE YAKULT [Suspect]
     Active Substance: LEVOLEUCOVORIN CALCIUM
     Indication: PANCREATIC CARCINOMA METASTATIC
     Dosage: 350 MG, (197.5 MG/M2), 1X/DAY
     Route: 041
     Dates: start: 20140425, end: 20140425
  23. LEVOFOLINATE YAKULT [Suspect]
     Active Substance: LEVOLEUCOVORIN CALCIUM
     Dosage: 350 MG, (197.5 MG/M2), 1X/DAY
     Route: 041
     Dates: start: 20140626, end: 20140626
  24. CAMPTO [Suspect]
     Active Substance: IRINOTECAN
     Dosage: 250 MG, (141.1 MG/M2), 1X/DAY
     Route: 041
     Dates: start: 20140814, end: 20140814
  25. ELPLAT [Suspect]
     Active Substance: OXALIPLATIN
     Dosage: 150 MG, (84.7 MG/M2),1X/DAY
     Route: 041
     Dates: start: 20140508, end: 20140508
  26. ELPLAT [Suspect]
     Active Substance: OXALIPLATIN
     Dosage: 150 MG, (84.7 MG/M2),1X/DAY
     Route: 041
     Dates: start: 20140918, end: 20140918
  27. ELPLAT [Suspect]
     Active Substance: OXALIPLATIN
     Dosage: 150 MG, (84.7 MG/M2), 1X/DAY
     Route: 041
     Dates: start: 20141009, end: 20141009
  28. LEVOFOLINATE YAKULT [Suspect]
     Active Substance: LEVOLEUCOVORIN CALCIUM
     Dosage: 350 MG, (197.5 MG/M2),1X/DAY
     Route: 041
     Dates: start: 20141009, end: 20141009
  29. CAMPTO [Suspect]
     Active Substance: IRINOTECAN
     Dosage: 250 MG, (141.1 MG/M2), 1X/DAY
     Route: 041
     Dates: start: 20140724, end: 20140724
  30. ELPLAT [Suspect]
     Active Substance: OXALIPLATIN
     Dosage: 150 MG, (84.7 MG/M2), 1X/DAY
     Route: 041
     Dates: start: 20140610, end: 20140610
  31. LEVOFOLINATE YAKULT [Suspect]
     Active Substance: LEVOLEUCOVORIN CALCIUM
     Dosage: 350 MG, (197.5 MG/M2),1X/DAY
     Route: 041
     Dates: start: 20140522, end: 20140522
  32. LEVOFOLINATE YAKULT [Suspect]
     Active Substance: LEVOLEUCOVORIN CALCIUM
     Dosage: 350 MG, (197.5 MG/M2), 1X/DAY
     Route: 041
     Dates: start: 20140828, end: 20140828
  33. 5-FU /00098801/ [Concomitant]
     Active Substance: FLUOROURACIL
     Indication: PANCREATIC CARCINOMA METASTATIC
     Dosage: 700 MG, (395 MG/M2)
     Route: 040
     Dates: start: 20140425, end: 20141009
  34. CAMPTO [Suspect]
     Active Substance: IRINOTECAN
     Dosage: 250 MG, (141.1 MG/M2), 1X/DAY
     Route: 041
     Dates: start: 20140522, end: 20140522
  35. CAMPTO [Suspect]
     Active Substance: IRINOTECAN
     Dosage: 250 MG, (141.1 MG/M2), 1X/DAY
     Route: 041
     Dates: start: 20140918, end: 20140918

REACTIONS (9)
  - Hyperglycaemia [Unknown]
  - Neutrophil count decreased [Unknown]
  - Decreased appetite [Unknown]
  - Peripheral sensory neuropathy [Unknown]
  - Stomatitis [Unknown]
  - Neoplasm progression [Fatal]
  - White blood cell count decreased [Unknown]
  - Fatigue [Unknown]
  - Nausea [Unknown]

NARRATIVE: CASE EVENT DATE: 20140522
